FAERS Safety Report 19994507 (Version 1)
Quarter: 2021Q4

REPORT INFORMATION
  Report Type: Report from Study
  Country: None (occurrence: US)
  Receive Date: 20211026
  Receipt Date: 20211026
  Transmission Date: 20220304
  Serious: Yes (Hospitalization, Other)
  Sender: FDA-Public Use
  Company Number: US-ABBVIE-21K-163-3941501-00

PATIENT
  Age: 82 Year
  Sex: Female

DRUGS (4)
  1. IMBRUVICA [Suspect]
     Active Substance: IBRUTINIB
     Indication: Chronic lymphocytic leukaemia recurrent
     Route: 048
     Dates: start: 20210505
  2. IMBRUVICA [Suspect]
     Active Substance: IBRUTINIB
     Route: 048
     Dates: start: 20210505
  3. IMBRUVICA [Suspect]
     Active Substance: IBRUTINIB
     Route: 048
     Dates: start: 202107, end: 202108
  4. IMBRUVICA [Suspect]
     Active Substance: IBRUTINIB
     Route: 048

REACTIONS (20)
  - Nephrolithiasis [Unknown]
  - Pyrexia [Unknown]
  - Medical device site infection [Recovering/Resolving]
  - Fungal sepsis [Not Recovered/Not Resolved]
  - Eye disorder [Unknown]
  - Faeces discoloured [Not Recovered/Not Resolved]
  - Alopecia [Unknown]
  - Dysuria [Unknown]
  - Malaise [Recovering/Resolving]
  - Urinary tract infection fungal [Unknown]
  - Asthenia [Not Recovered/Not Resolved]
  - Urinary tract infection bacterial [Unknown]
  - Malaise [Not Recovered/Not Resolved]
  - Diarrhoea [Unknown]
  - Insomnia [Not Recovered/Not Resolved]
  - Dry eye [Unknown]
  - Contusion [Unknown]
  - Nausea [Unknown]
  - Abdominal discomfort [Unknown]
  - Malaise [Not Recovered/Not Resolved]

NARRATIVE: CASE EVENT DATE: 20210101
